FAERS Safety Report 6212705-0 (Version None)
Quarter: 2009Q2

REPORT INFORMATION
  Report Type: 
  Country: None (occurrence: None)
  Receive Date: 20090601
  Receipt Date: 20090601
  Transmission Date: 20091009
  Serious: No
  Sender: FDA-Public Use
  Company Number: None

PATIENT
  Sex: Female
  Weight: 66.6788 kg

DRUGS (1)
  1. DURAGESIC-50 [Suspect]
     Dosage: ONE PATCH CHANGED Q 72
     Dates: start: 20041001

REACTIONS (2)
  - DRUG HYPERSENSITIVITY [None]
  - PRODUCT QUALITY ISSUE [None]
